FAERS Safety Report 21737269 (Version 2)
Quarter: 2022Q4

REPORT INFORMATION
  Report Type: Spontaneous
  Country: US (occurrence: US)
  Receive Date: 20221216
  Receipt Date: 20221222
  Transmission Date: 20230112
  Serious: No
  Sender: FDA-Public Use
  Company Number: US-AMGEN-USASP2022214917

PATIENT
  Age: 66 Year
  Sex: Female

DRUGS (13)
  1. OTEZLA [Suspect]
     Active Substance: APREMILAST
     Indication: Psoriasis
     Dosage: 30 MILLIGRAM, BID
     Route: 065
     Dates: start: 20221012
  2. BETAMETHASONE VALERATE [Concomitant]
     Active Substance: BETAMETHASONE VALERATE
  3. CLOBETASOL [Concomitant]
     Active Substance: CLOBETASOL
  4. CLOTRIMAZOLE AND BETAMETHASONE DIPROPIONATE [Concomitant]
     Active Substance: BETAMETHASONE\BETAMETHASONE DIPROPIONATE\CLOTRIMAZOLE
  5. CLOTRIMAZOLE [Concomitant]
     Active Substance: CLOTRIMAZOLE
  6. DEXAMETHASONE PHOSPHATE [Concomitant]
     Active Substance: DEXAMETHASONE PHOSPHATE
  7. DUPIXENT [Concomitant]
     Active Substance: DUPILUMAB
  8. EUCRISA [Concomitant]
     Active Substance: CRISABOROLE
  9. FLUCONAZOLE [Concomitant]
     Active Substance: FLUCONAZOLE
  10. FLUOCINOLONE ACETONIDE [Concomitant]
     Active Substance: FLUOCINOLONE ACETONIDE
  11. METHYLPREDNISOLONE [Concomitant]
     Active Substance: METHYLPREDNISOLONE
     Dosage: 4 MILLIGRAM
  12. MICONAZOLE [Concomitant]
     Active Substance: MICONAZOLE
  13. NEOMYCIN AND POLYMYXIN B SULFATES AND HYDROCORTISONE [Concomitant]
     Active Substance: HYDROCORTISONE\NEOMYCIN SULFATE\POLYMYXIN B SULFATE

REACTIONS (1)
  - Psoriasis [Unknown]

NARRATIVE: CASE EVENT DATE: 20220101
